FAERS Safety Report 5566320-2 (Version None)
Quarter: 2007Q4

REPORT INFORMATION
  Report Type: 
  Country: None (occurrence: None)
  Receive Date: 20071219
  Receipt Date: 20071206
  Transmission Date: 20080405
  Serious: Yes (Other)
  Sender: FDA-Public Use
  Company Number: US-BAYER-200714077BCC

PATIENT
  Age: 32 Year
  Sex: Female
  Weight: 50 kg

DRUGS (4)
  1. MIDOL EXTENDED RELIEF CAPLETS [Suspect]
     Indication: DYSMENORRHOEA
     Dosage: AS USED: 220 MG  UNIT DOSE: 220 MG
     Route: 048
     Dates: start: 20071205
  2. SEROQUEL [Suspect]
     Indication: DRUG USE FOR UNKNOWN INDICATION
  3. DEPAKOTE [Concomitant]
  4. WELLBUTRIN [Concomitant]

REACTIONS (3)
  - DIZZINESS [None]
  - HOT FLUSH [None]
  - NAUSEA [None]
